FAERS Safety Report 8617846-6 (Version None)
Quarter: 2012Q3

REPORT INFORMATION
  Report Type: 
  Country: None (occurrence: None)
  Receive Date: 20120824
  Receipt Date: 20120403
  Transmission Date: 20120928
  Serious: No
  Sender: FDA-Public Use
  Company Number: US-ASTRAZENECA-2012SE12929

PATIENT
  Age: 45 Year
  Sex: Female

DRUGS (3)
  1. SYMBICORT [Suspect]
     Dosage: 2 PUFFS A DAY
     Route: 055
  2. SYMBICORT [Suspect]
     Dosage: 1 PUFFS EVERY 12 HOURS
     Route: 055
  3. FLUTICASONE PROPIONATE [Concomitant]

REACTIONS (5)
  - HEADACHE [None]
  - DRUG INEFFECTIVE [None]
  - RESPIRATORY DISORDER [None]
  - MALAISE [None]
  - ADVERSE EVENT [None]
